FAERS Safety Report 7276109-4 (Version None)
Quarter: 2011Q1

REPORT INFORMATION
  Report Type: 
  Country: None (occurrence: None)
  Receive Date: 20110131
  Receipt Date: 20100831
  Transmission Date: 20110831
  Serious: Yes (Life-Threatening, Hospitalization)
  Sender: FDA-Public Use
  Company Number: 2010SA052366

PATIENT
  Age: 48 Year
  Sex: Female

DRUGS (10)
  1. HYDROCHLOROTHIAZIDE [Concomitant]
  2. LOSARTAN (LOSARTAN POTASSIUM) [Concomitant]
  3. METFORMIN (METFORMIN HYDROCHLORIDE) [Concomitant]
  4. PLACEBO [Suspect]
     Indication: TYPE 2 DIABETES MELLITUS
     Dosage: 10 MICROGRAM(S); INJECTION, SOLUTION;SUBCUTANEOUS,DAILY; 15 MICROGRAM(S); 20 MICGM INJ: SOL:SUBCUTAN
     Route: 058
     Dates: start: 20100505
  5. PLACEBO [Suspect]
     Indication: TYPE 2 DIABETES MELLITUS
     Dosage: 10 MICROGRAM(S); INJECTION, SOLUTION;SUBCUTANEOUS,DAILY; 15 MICROGRAM(S); 20 MICGM INJ: SOL:SUBCUTAN
     Route: 058
     Dates: start: 20100428, end: 20100504
  6. PLACEBO [Suspect]
     Indication: TYPE 2 DIABETES MELLITUS
     Dosage: 10 MICROGRAM(S); INJECTION, SOLUTION;SUBCUTANEOUS,DAILY; 15 MICROGRAM(S); 20 MICGM INJ: SOL:SUBCUTAN
     Route: 058
     Dates: start: 20100420, end: 20100427
  7. OPTICLICK / UNKNOWN / UNKNOWN [Suspect]
     Indication: TYPE 2 DIABETES MELLITUS
     Dosage: ADMINISTRATION DEVICE;DAILY
     Dates: start: 20100414
  8. ASPIRIN [Concomitant]
  9. SITAGLIPTIN PHOSPHATE [Suspect]
     Indication: TYPE 2 DIABETES MELLITUS
     Dosage: 100 MILLIGRMA(S); DAILY
     Route: 048
     Dates: start: 20100420
  10. PENTOXIFYLLINE [Concomitant]

REACTIONS (3)
  - ABSCESS LIMB [None]
  - HYPOCHROMIC ANAEMIA [None]
  - THROMBOCYTOSIS [None]
